FAERS Safety Report 4269735-8 (Version None)
Quarter: 2004Q1

REPORT INFORMATION
  Report Type: 
  Country: None (occurrence: None)
  Receive Date: 20040107
  Receipt Date: 20040106
  Transmission Date: 20041129
  Serious: Yes (Hospitalization)
  Sender: FDA-Public Use
  Company Number: CART-10270

PATIENT
  Age: 33 Year
  Sex: Male

DRUGS (1)
  1. CARTICEL [Suspect]
     Indication: ARTHROPATHY
     Dosage: 1 NA ONCE IS
     Dates: start: 20030812, end: 20030812

REACTIONS (4)
  - ARTHRITIS INFECTIVE [None]
  - BACTERIAL INFECTION [None]
  - GRAFT INFECTION [None]
  - IMMUNE SYSTEM DISORDER [None]
